FAERS Safety Report 23334117 (Version 3)
Quarter: 2025Q3

REPORT INFORMATION
  Report Type: Report from Study
  Country: GB (occurrence: GB)
  Receive Date: 20231223
  Receipt Date: 20250721
  Transmission Date: 20251020
  Serious: Yes (Hospitalization)
  Sender: NOVARTIS
  Company Number: GB-002147023-NVSC2021GB165839

PATIENT
  Age: 51 Year
  Sex: Male

DRUGS (5)
  1. MAYZENT [Suspect]
     Active Substance: SIPONIMOD
     Indication: Secondary progressive multiple sclerosis
     Dosage: 2 MG, QD
     Route: 048
     Dates: start: 20210621
  2. MAYZENT [Suspect]
     Active Substance: SIPONIMOD
     Indication: Multiple sclerosis
     Dosage: 1 MG, QD
     Route: 048
  3. MAYZENT [Suspect]
     Active Substance: SIPONIMOD
     Dosage: 1 MG, QD
     Route: 048
  4. MAYZENT [Suspect]
     Active Substance: SIPONIMOD
     Dosage: 2 MG, QD
     Route: 048
  5. MAYZENT [Suspect]
     Active Substance: SIPONIMOD
     Dosage: 1 MG, QD
     Route: 048

REACTIONS (19)
  - Urinary retention [Recovered/Resolved with Sequelae]
  - Nasopharyngitis [Recovered/Resolved]
  - Migraine [Recovered/Resolved]
  - Ocular discomfort [Recovered/Resolved]
  - Head discomfort [Recovered/Resolved]
  - Fluid retention [Not Recovered/Not Resolved]
  - Hypoaesthesia [Unknown]
  - Condition aggravated [Unknown]
  - Gait disturbance [Unknown]
  - Fall [Unknown]
  - Musculoskeletal chest pain [Unknown]
  - Mobility decreased [Unknown]
  - Pollakiuria [Unknown]
  - Urinary incontinence [Unknown]
  - Micturition urgency [Unknown]
  - Urinary tract infection [Recovered/Resolved]
  - Dysuria [Recovered/Resolved]
  - Skin discolouration [Unknown]
  - Urinary tract infection [Recovered/Resolved]

NARRATIVE: CASE EVENT DATE: 20210701
